FAERS Safety Report 7914273-1 (Version None)
Quarter: 2011Q4

REPORT INFORMATION
  Report Type: 
  Country: None (occurrence: None)
  Receive Date: 20111114
  Receipt Date: 20111114
  Transmission Date: 20120403
  Serious: Yes (Other)
  Sender: FDA-Public Use
  Company Number: None

PATIENT
  Age: 85 Year
  Sex: Female
  Weight: 60.782 kg

DRUGS (1)
  1. CYCLOBENZAPRINE [Suspect]
     Indication: SLEEP DISORDER THERAPY
     Dosage: 1 TABLET BEDTIME
     Dates: start: 20111014

REACTIONS (2)
  - CHEST PAIN [None]
  - ARRHYTHMIA [None]
